FAERS Safety Report 9536191 (Version 1)
Quarter: 2013Q2

REPORT INFORMATION
  Report Type: Spontaneous
  Country: US (occurrence: None)
  Receive Date: 20130507
  Receipt Date: 20130507
  Transmission Date: 20140414
  Serious: No
  Sender: FDA-Public Use
  Company Number: PHEH2012US025435

PATIENT
  Age: 69 Year
  Sex: Male
  Weight: 78.1 kg

DRUGS (6)
  1. AFINITOR (RAD) [Suspect]
     Indication: RENAL CELL CARCINOMA
     Route: 048
     Dates: start: 20120622, end: 20121206
  2. PROSCAR [Concomitant]
  3. LANTUS (INSULIN GLARGINE) [Concomitant]
  4. OXYCODON (OXYCODONE HYDROCHLORIDE) [Concomitant]
  5. XANAX (ALPRAZOLAM) [Concomitant]
  6. ZOFRAN (ONDANSETRON HYDROCHLORIDE) [Concomitant]

REACTIONS (1)
  - Drug ineffective [None]
